FAERS Safety Report 7488452-4 (Version None)
Quarter: 2011Q2

REPORT INFORMATION
  Report Type: 
  Country: None (occurrence: None)
  Receive Date: 20110518
  Receipt Date: 20110509
  Transmission Date: 20111010
  Serious: Yes (Other)
  Sender: FDA-Public Use
  Company Number: PHHY2011US40323

PATIENT
  Sex: Female

DRUGS (9)
  1. XANAX [Concomitant]
  2. LOPRESSOR [Suspect]
     Indication: MITRAL VALVE PROLAPSE
     Dosage: 25 MG, QID
  3. KLONOPIN [Concomitant]
  4. SYNTHROID [Concomitant]
  5. METOPROLOL TARTRATE [Suspect]
  6. DIAZEPAM [Concomitant]
  7. BETA BLOCKING AGENTS [Suspect]
  8. CLONAZEPAM [Suspect]
  9. VITAMINS [Concomitant]

REACTIONS (10)
  - PANIC ATTACK [None]
  - VISUAL ACUITY REDUCED [None]
  - FEAR [None]
  - DYSPNOEA [None]
  - ABNORMAL DREAMS [None]
  - HEART RATE INCREASED [None]
  - DRUG INEFFECTIVE [None]
  - RASH [None]
  - TREMOR [None]
  - WRONG TECHNIQUE IN DRUG USAGE PROCESS [None]
